FAERS Safety Report 4381347-4 (Version None)
Quarter: 2004Q2

REPORT INFORMATION
  Report Type: 
  Country: None (occurrence: None)
  Receive Date: 20040616
  Receipt Date: 20040601
  Transmission Date: 20050107
  Serious: Yes (Death)
  Sender: FDA-Public Use
  Company Number: US_0406103416

PATIENT
  Age: 50 Year

DRUGS (1)
  1. FLUOXETINE [Suspect]

REACTIONS (3)
  - CARDIO-RESPIRATORY ARREST [None]
  - DRUG TOXICITY [None]
  - FOREIGN BODY ASPIRATION [None]
